FAERS Safety Report 25653994 (Version 1)
Quarter: 2025Q3

REPORT INFORMATION
  Report Type: Spontaneous
  Country: EU (occurrence: EU)
  Receive Date: 20250807
  Receipt Date: 20250807
  Transmission Date: 20251021
  Serious: Yes (Other)
  Sender: ROCHE
  Company Number: EU-BoehringerIngelheim-2025-BI-074772

PATIENT
  Age: 75 Year
  Sex: Female
  Weight: 76 kg

DRUGS (1)
  1. METALYSE [Suspect]
     Active Substance: TENECTEPLASE
     Indication: Cerebrovascular accident
     Route: 042
     Dates: start: 20250528

REACTIONS (2)
  - Angioedema [Recovered/Resolved with Sequelae]
  - Respiratory disorder [Recovered/Resolved with Sequelae]

NARRATIVE: CASE EVENT DATE: 20250528
